FAERS Safety Report 4344336-1 (Version None)
Quarter: 2004Q2

REPORT INFORMATION
  Report Type: 
  Country: None (occurrence: None)
  Receive Date: 20040419
  Receipt Date: 20040413
  Transmission Date: 20050107
  Serious: Yes (Life-Threatening, Hospitalization, Other)
  Sender: FDA-Public Use
  Company Number: HQWYE010012MAR03

PATIENT
  Age: 50 Year
  Sex: Male

DRUGS (2)
  1. RAPAMUNE [Suspect]
     Indication: PROPHYLAXIS AGAINST TRANSPLANT REJECTION
     Dosage: 8 MG 1X PER 1 DAY
     Route: 048
     Dates: start: 20020716, end: 20030415
  2. CORTICOSTEROID NOS [Suspect]
     Indication: PROPHYLAXIS AGAINST TRANSPLANT REJECTION

REACTIONS (6)
  - DIALYSIS [None]
  - FOOT AMPUTATION [None]
  - GENERAL PHYSICAL HEALTH DETERIORATION [None]
  - PERIPHERAL ISCHAEMIA [None]
  - POSTOPERATIVE INFECTION [None]
  - PURULENCE [None]
